FAERS Safety Report 6987134-2 (Version None)
Quarter: 2010Q3

REPORT INFORMATION
  Report Type: 
  Country: None (occurrence: None)
  Receive Date: 20100916
  Receipt Date: 20100909
  Transmission Date: 20110219
  Serious: Yes (Other)
  Sender: FDA-Public Use
  Company Number: FR-WYE-G06643410

PATIENT
  Sex: Male

DRUGS (17)
  1. PIPERACILLIN AND TAZOBACTAM [Suspect]
     Route: 042
     Dates: start: 20100527, end: 20100607
  2. HUMALOG [Suspect]
     Dosage: UNKNOWN
     Route: 058
     Dates: start: 20100527, end: 20100603
  3. MOPRAL [Suspect]
     Indication: HYPERTENSION
     Route: 042
     Dates: start: 20100527, end: 20100529
  4. BRISTOPEN [Suspect]
     Route: 042
     Dates: start: 20100530, end: 20100530
  5. AMIKIN [Suspect]
     Route: 042
     Dates: start: 20100530, end: 20100603
  6. VANCOMYCIN [Suspect]
     Route: 042
     Dates: start: 20100531, end: 20100607
  7. SERESTA [Suspect]
     Dosage: 90 MG TOTAL DAILY
     Route: 048
     Dates: start: 20100528, end: 20100529
  8. PROPOFOL [Suspect]
     Route: 042
     Dates: start: 20100530, end: 20100531
  9. SUFENTA PRESERVATIVE FREE [Suspect]
     Route: 042
     Dates: start: 20100530, end: 20100531
  10. BRICANYL [Concomitant]
     Indication: CHRONIC OBSTRUCTIVE PULMONARY DISEASE
     Route: 055
     Dates: start: 20100401
  11. ATROVENT [Concomitant]
     Route: 055
     Dates: start: 20100401
  12. AVANDAMET [Concomitant]
     Dosage: UNKNOWN
     Route: 048
  13. ALDACTONE [Concomitant]
     Route: 048
  14. KARDEGIC [Concomitant]
     Route: 048
     Dates: start: 20100529, end: 20100529
  15. VOLUVEN [Suspect]
     Route: 042
     Dates: end: 20100601
  16. CORDARONE [Concomitant]
     Route: 048
  17. LOVENOX [Suspect]
     Indication: PROPHYLAXIS
     Route: 058
     Dates: start: 20100527, end: 20100531

REACTIONS (6)
  - ALTERED STATE OF CONSCIOUSNESS [None]
  - CHRONIC OBSTRUCTIVE PULMONARY DISEASE [None]
  - CONDITION AGGRAVATED [None]
  - HEPARIN-INDUCED THROMBOCYTOPENIA [None]
  - HYPERTENSION [None]
  - LACTIC ACIDOSIS [None]
